FAERS Safety Report 13192165 (Version 1)
Quarter: 2017Q1

REPORT INFORMATION
  Report Type: Spontaneous
  Country: US (occurrence: US)
  Receive Date: 20170206
  Receipt Date: 20170206
  Transmission Date: 20170428
  Serious: No
  Sender: FDA-Public Use
  Company Number: None

PATIENT
  Age: 42 Year
  Sex: Female

DRUGS (1)
  1. HUMIRA [Suspect]
     Active Substance: ADALIMUMAB
     Indication: PSORIASIS
     Dosage: Q14D
     Route: 058
     Dates: start: 20160112

REACTIONS (4)
  - Pruritus [None]
  - Rash macular [None]
  - Erythema [None]
  - Rash [None]

NARRATIVE: CASE EVENT DATE: 20160119
